FAERS Safety Report 9753861 (Version 2)
Quarter: 2015Q3

REPORT INFORMATION
  Report Type: Spontaneous
  Country: US (occurrence: US)
  Receive Date: 20131213
  Receipt Date: 20150805
  Transmission Date: 20151125
  Serious: No
  Sender: FDA-Public Use
  Company Number: US-GILEAD-2010-0027664

PATIENT
  Age: 58 Year
  Sex: Female
  Weight: 78.92 kg

DRUGS (12)
  1. LETAIRIS [Suspect]
     Active Substance: AMBRISENTAN
     Indication: PULMONARY ARTERIAL HYPERTENSION
     Route: 048
     Dates: start: 20100126
  2. NOVOLIN [Concomitant]
     Active Substance: INSULIN HUMAN
  3. LASIX [Concomitant]
     Active Substance: FUROSEMIDE
  4. THEOPHYLLINE [Concomitant]
     Active Substance: THEOPHYLLINE ANHYDROUS
  5. COZAAR [Concomitant]
     Active Substance: LOSARTAN POTASSIUM
  6. CARDIZEM [Concomitant]
     Active Substance: DILTIAZEM HYDROCHLORIDE
  7. PREDNISONE. [Concomitant]
     Active Substance: PREDNISONE
  8. IMURAN [Concomitant]
     Active Substance: AZATHIOPRINE
  9. PLAQUENIL [Concomitant]
     Active Substance: HYDROXYCHLOROQUINE SULFATE
  10. BONIVA [Concomitant]
     Active Substance: IBANDRONATE SODIUM
  11. TRILIPIX [Concomitant]
     Active Substance: FENOFIBRIC ACID
  12. LANTUS [Concomitant]
     Active Substance: INSULIN GLARGINE

REACTIONS (1)
  - Unevaluable event [Unknown]
